FAERS Safety Report 13870133 (Version 1)
Quarter: 2017Q3

REPORT INFORMATION
  Report Type: Spontaneous
  Country: US (occurrence: US)
  Receive Date: 20170815
  Receipt Date: 20170815
  Transmission Date: 20171127
  Serious: Yes (Other)
  Sender: FDA-Public Use
  Company Number: US-TEVA-796611USA

PATIENT
  Sex: Female

DRUGS (1)
  1. CELECOXIB. [Suspect]
     Active Substance: CELECOXIB
     Route: 065

REACTIONS (6)
  - Product use complaint [Unknown]
  - Drug ineffective [Unknown]
  - Product size issue [Unknown]
  - Choking [Unknown]
  - Osteoarthritis [Unknown]
  - Pain [Unknown]
